FAERS Safety Report 22166200 (Version 1)
Quarter: 2023Q1

REPORT INFORMATION
  Report Type: Spontaneous
  Country: US (occurrence: None)
  Receive Date: 20230331
  Receipt Date: 20230331
  Transmission Date: 20230418
  Serious: No
  Sender: FDA-Public Use
  Company Number: None

PATIENT
  Age: 56 Year
  Sex: Female
  Weight: 63 kg

DRUGS (14)
  1. MONTELUKAST SODIUM [Suspect]
     Active Substance: MONTELUKAST SODIUM
     Indication: Asthma
     Dosage: OTHER QUANTITY : 1 TABLET(S);?FREQUENCY : DAILY;?
     Route: 048
  2. POTASSIUM [Concomitant]
     Active Substance: POTASSIUM
  3. VITAMINS [Concomitant]
     Active Substance: VITAMINS
  4. FISH OIL [Concomitant]
     Active Substance: FISH OIL
  5. LORATADINE [Concomitant]
     Active Substance: LORATADINE
  6. EXPECTORANT [Concomitant]
     Active Substance: GUAIFENESIN
  7. CALCIUM [Concomitant]
     Active Substance: CALCIUM
  8. BLACK COHOSH [Concomitant]
     Active Substance: BLACK COHOSH
  9. FAMOTIDINE [Concomitant]
     Active Substance: FAMOTIDINE
  10. TYLENOL [Concomitant]
     Active Substance: ACETAMINOPHEN
  11. ADVIL [Concomitant]
     Active Substance: IBUPROFEN
  12. Eczema cream [Concomitant]
  13. XLEAR NASAL SPRAY [Concomitant]
  14. MONTELUKAST SODIUM [Suspect]
     Active Substance: MONTELUKAST SODIUM
     Indication: Multiple allergies

REACTIONS (2)
  - Depression [None]
  - Anxiety [None]
